FAERS Safety Report 9525396 (Version 1)
Quarter: 2013Q1

REPORT INFORMATION
  Report Type: Spontaneous
  Country: US (occurrence: None)
  Receive Date: 20130314
  Receipt Date: 20130314
  Transmission Date: 20140127
  Serious: No
  Sender: FDA-Public Use
  Company Number: 1212USA010045

PATIENT
  Age: 55 Year
  Sex: Female

DRUGS (3)
  1. VICTRELIS (BOCEPREVIR) CAPSULE, 200MG [Suspect]
     Indication: HEPATITIS C
     Dosage: 200MG, 3 TIMES DAILY, ORAL
     Route: 048
     Dates: start: 20121010
  2. PEGASYS (PEGINTERFERON ALFA-2A) [Suspect]
     Dosage: 180 MICROGRAM WEEKLY SUBCUTANEOUS
     Route: 058
  3. RIBASPHERE (RIBAVIRIN) [Suspect]
     Dosage: 400 MG, QAM

REACTIONS (1)
  - Fatigue [None]
